FAERS Safety Report 9299056 (Version 1)
Quarter: 2013Q2

REPORT INFORMATION
  Report Type: Report from Study
  Country: BR (occurrence: BR)
  Receive Date: 20130520
  Receipt Date: 20130520
  Transmission Date: 20140414
  Serious: Yes (Death)
  Sender: FDA-Public Use
  Company Number: BR-ABBOTT-13P-020-1092110-00

PATIENT
  Sex: Male
  Weight: 48 kg

DRUGS (5)
  1. HUMIRA [Suspect]
     Indication: CROHN^S DISEASE
     Dosage: WEEK 0
     Route: 058
  2. HUMIRA [Suspect]
     Dosage: WEEK 2
     Route: 058
  3. HUMIRA [Suspect]
     Route: 058
     Dates: start: 201201
  4. MESALAZINE [Concomitant]
     Indication: CROHN^S DISEASE
     Route: 048
     Dates: start: 2007
  5. UNKNOWN DRUG [Concomitant]
     Indication: STEROID THERAPY
     Route: 048

REACTIONS (5)
  - Pleural effusion [Fatal]
  - Condition aggravated [Fatal]
  - Pneumonia [Fatal]
  - Infection [Fatal]
  - Malnutrition [Unknown]
